FAERS Safety Report 9385077 (Version 1)
Quarter: 2013Q3

REPORT INFORMATION
  Report Type: Spontaneous
  Country: GB (occurrence: None)
  Receive Date: 20130701
  Receipt Date: 20130701
  Transmission Date: 20140515
  Serious: Yes (Disabling)
  Sender: FDA-Public Use
  Company Number: GER/UKI/13/0030215

PATIENT
  Age: 55 Year
  Sex: Male

DRUGS (2)
  1. SERTRALINE (SERTRALINE) (SERTRALINE) [Suspect]
     Indication: POST-TRAUMATIC STRESS DISORDER
     Route: 048
     Dates: start: 20130501, end: 20130601
  2. DIAZEPAM (DIAZEPAM) [Concomitant]

REACTIONS (4)
  - Paraesthesia [None]
  - Nausea [None]
  - Dyspepsia [None]
  - Coordination abnormal [None]
